FAERS Safety Report 10688997 (Version 1)
Quarter: 2015Q1

REPORT INFORMATION
  Report Type: Spontaneous
  Country: JP (occurrence: JP)
  Receive Date: 20150103
  Receipt Date: 20150103
  Transmission Date: 20150720
  Serious: Yes (Other)
  Sender: FDA-Public Use
  Company Number: JP-BRISTOL-MYERS SQUIBB COMPANY-BMS-2014-005347

PATIENT
  Age: 52 Year
  Sex: Female

DRUGS (5)
  1. FORXIGA [Suspect]
     Active Substance: DAPAGLIFLOZIN
     Indication: TYPE 2 DIABETES MELLITUS
     Dosage: 5 MG, UNK
     Route: 048
  2. FLUITRAN [Concomitant]
     Active Substance: TRICHLORMETHIAZIDE
  3. AMARYL [Concomitant]
     Active Substance: GLIMEPIRIDE
  4. ARTIST [Concomitant]
     Active Substance: CARVEDILOL
  5. ACTOS [Concomitant]
     Active Substance: PIOGLITAZONE HYDROCHLORIDE

REACTIONS (1)
  - Cystitis haemorrhagic [Unknown]

NARRATIVE: CASE EVENT DATE: 20141214
